FAERS Safety Report 13643922 (Version 1)
Quarter: 2017Q2

REPORT INFORMATION
  Report Type: Report from Study
  Country: DE (occurrence: DE)
  Receive Date: 20170612
  Receipt Date: 20170612
  Transmission Date: 20170830
  Serious: Yes (Hospitalization)
  Sender: FDA-Public Use
  Company Number: DE-CELGENEUS-DEU-2014112819

PATIENT
  Age: 45 Year
  Sex: Female
  Weight: 70.9 kg

DRUGS (3)
  1. OPIPRAMOL [Concomitant]
     Active Substance: OPIPRAMOL
     Indication: PRODUCT USED FOR UNKNOWN INDICATION
     Dosage: 50 MILLIGRAM
     Route: 065
  2. ABRAXANE [Suspect]
     Active Substance: PACLITAXEL
     Dosage: 226.25 MG
     Route: 050
     Dates: start: 20141124
  3. ABRAXANE [Suspect]
     Active Substance: PACLITAXEL
     Indication: BREAST CANCER
     Dosage: 226.25 MG
     Route: 050
     Dates: start: 20141001, end: 20141108

REACTIONS (1)
  - Mastitis [Recovered/Resolved]

NARRATIVE: CASE EVENT DATE: 20141108
